FAERS Safety Report 13109961 (Version 1)
Quarter: 2017Q1

REPORT INFORMATION
  Report Type: Spontaneous
  Country: US (occurrence: US)
  Receive Date: 20170112
  Receipt Date: 20170112
  Transmission Date: 20170428
  Serious: Yes (Other)
  Sender: FDA-Public Use
  Company Number: US-ROCHE-1099759

PATIENT
  Sex: Female

DRUGS (3)
  1. ACTIVASE [Suspect]
     Active Substance: ALTEPLASE
     Indication: OVARIAN CANCER
  2. ACTIVASE [Suspect]
     Active Substance: ALTEPLASE
     Indication: METASTASES TO PLEURA
  3. ACTIVASE [Suspect]
     Active Substance: ALTEPLASE
     Indication: EMBOLISM
     Route: 042
     Dates: start: 20100110, end: 20100110

REACTIONS (1)
  - Therapy non-responder [Unknown]
